FAERS Safety Report 18969459 (Version 7)
Quarter: 2024Q2

REPORT INFORMATION
  Report Type: Report from Study
  Country: US (occurrence: US)
  Receive Date: 20210304
  Receipt Date: 20240528
  Transmission Date: 20240716
  Serious: Yes (Other)
  Sender: FDA-Public Use
  Company Number: US-TAKEDA-2021TUS012105

PATIENT
  Age: 20 Year
  Sex: Male
  Weight: 113 kg

DRUGS (23)
  1. HUMAN IMMUNOGLOBULIN G [Suspect]
     Active Substance: HUMAN IMMUNOGLOBULIN G
     Indication: Congenital hypogammaglobulinaemia
     Dosage: 45 GRAM, Q4WEEKS
     Route: 042
     Dates: start: 20051114
  2. HUMAN IMMUNOGLOBULIN G [Suspect]
     Active Substance: HUMAN IMMUNOGLOBULIN G
     Indication: Congenital hypogammaglobulinaemia
     Dosage: 45 GRAM, Q4WEEKS
     Route: 042
     Dates: start: 20051114
  3. HUMAN IMMUNOGLOBULIN G [Suspect]
     Active Substance: HUMAN IMMUNOGLOBULIN G
     Dosage: 45 GRAM, Q4WEEKS
     Route: 042
     Dates: start: 20060918
  4. HUMAN IMMUNOGLOBULIN G [Suspect]
     Active Substance: HUMAN IMMUNOGLOBULIN G
     Dosage: 45 GRAM, Q4WEEKS
     Route: 042
     Dates: start: 20060918
  5. HUMAN IMMUNOGLOBULIN G [Suspect]
     Active Substance: HUMAN IMMUNOGLOBULIN G
     Dosage: 50 GRAM, Q4WEEKS
     Route: 042
  6. HUMAN IMMUNOGLOBULIN G [Suspect]
     Active Substance: HUMAN IMMUNOGLOBULIN G
     Dosage: 50 GRAM, Q4WEEKS
     Route: 042
  7. ACETAMINOPHEN [Concomitant]
     Active Substance: ACETAMINOPHEN
  8. EPINEPHRINE ASCORBATE [Concomitant]
  9. FLUTICASONE [Concomitant]
     Active Substance: FLUTICASONE
  10. SODIUM CHLORIDE [Concomitant]
     Active Substance: SODIUM CHLORIDE
  11. DIPHENHYDRAMINE [Concomitant]
     Active Substance: DIPHENHYDRAMINE
  12. FLUTICASONE PROPIONATE [Concomitant]
     Active Substance: FLUTICASONE PROPIONATE
  13. DIPHENHYDRAMINE HYDROCHLORIDE [Concomitant]
     Active Substance: DIPHENHYDRAMINE HYDROCHLORIDE
  14. FLONASE [Concomitant]
     Active Substance: FLUTICASONE PROPIONATE
  15. PROPIONATE SODIUM [Concomitant]
  16. PROAIR HFA [Concomitant]
     Active Substance: ALBUTEROL SULFATE
  17. ZYRTEC [Concomitant]
     Active Substance: CETIRIZINE HYDROCHLORIDE
  18. ALEVE EASY OPEN ARTHRITIS CAP [Concomitant]
     Active Substance: NAPROXEN SODIUM
  19. FLOVENT HFA [Concomitant]
     Active Substance: FLUTICASONE PROPIONATE
  20. PROAIR HFA [Concomitant]
     Active Substance: ALBUTEROL SULFATE
  21. ALEVE [Concomitant]
     Active Substance: NAPROXEN SODIUM
  22. EPINEPHRINE [Concomitant]
     Active Substance: EPINEPHRINE
     Dosage: UNK
     Route: 065
  23. AIRSUPRA [Concomitant]
     Active Substance: ALBUTEROL SULFATE\BUDESONIDE
     Dosage: UNK

REACTIONS (8)
  - Pneumonia [Not Recovered/Not Resolved]
  - Productive cough [Unknown]
  - Bronchitis [Unknown]
  - Sinus polyp [Unknown]
  - Gastrooesophageal reflux disease [Recovering/Resolving]
  - Asthma [Unknown]
  - Lethargy [Unknown]
  - Product dose omission issue [Unknown]

NARRATIVE: CASE EVENT DATE: 20230227
